FAERS Safety Report 8402718-2 (Version None)
Quarter: 2012Q2

REPORT INFORMATION
  Report Type: 
  Country: None (occurrence: None)
  Receive Date: 20120601
  Receipt Date: 20120522
  Transmission Date: 20120825
  Serious: Yes (Hospitalization)
  Sender: FDA-Public Use
  Company Number: US-JNJFOC-20101000546

PATIENT
  Sex: Female
  Weight: 57.61 kg

DRUGS (13)
  1. REMICADE [Suspect]
     Route: 042
     Dates: start: 20080222
  2. REMICADE [Suspect]
     Indication: CROHN'S DISEASE
     Route: 042
     Dates: start: 20060825
  3. REMICADE [Suspect]
     Route: 042
     Dates: start: 20030127
  4. REMICADE [Suspect]
     Route: 042
     Dates: start: 20040120
  5. REMICADE [Suspect]
     Route: 042
     Dates: start: 20090203
  6. REMICADE [Suspect]
     Route: 042
     Dates: start: 20050928
  7. REMICADE [Suspect]
     Route: 042
     Dates: start: 20070129
  8. REMICADE [Suspect]
     Route: 042
     Dates: start: 20020509
  9. REMICADE [Suspect]
     Route: 042
     Dates: start: 20090422
  10. REMICADE [Suspect]
     Route: 042
     Dates: start: 20050105
  11. REMICADE [Suspect]
     Route: 042
     Dates: start: 20020710
  12. REMICADE [Suspect]
     Route: 042
     Dates: start: 20090827
  13. REMICADE [Suspect]
     Route: 042
     Dates: start: 20100119

REACTIONS (5)
  - ABDOMINAL ABSCESS [None]
  - ANASTOMOTIC LEAK [None]
  - INTESTINAL ANASTOMOSIS [None]
  - INTESTINAL RESECTION [None]
  - CROHN'S DISEASE [None]
